FAERS Safety Report 5924182-5 (Version None)
Quarter: 2008Q4

REPORT INFORMATION
  Report Type: 
  Country: None (occurrence: None)
  Receive Date: 20081020
  Receipt Date: 20081007
  Transmission Date: 20090506
  Serious: Yes (Other)
  Sender: FDA-Public Use
  Company Number: US-ELI_LILLY_AND_COMPANY-USA050598158

PATIENT
  Sex: Female
  Weight: 54.545 kg

DRUGS (4)
  1. FORTEO [Suspect]
     Indication: OSTEOPOROSIS
     Dosage: 20 UG, DAILY (1/D)
     Dates: start: 20050127
  2. FORTEO [Suspect]
     Dosage: 20 UG, DAILY (1/D)
     Dates: end: 20070101
  3. ARIMIDEX [Concomitant]
     Indication: PROPHYLAXIS
     Dosage: UNK, UNKNOWN
  4. AROMASIN [Concomitant]

REACTIONS (3)
  - BACK PAIN [None]
  - BREAST CANCER [None]
  - INTERVERTEBRAL DISC PROTRUSION [None]
